FAERS Safety Report 9094027 (Version 1)
Quarter: 2013Q1

REPORT INFORMATION
  Report Type: Spontaneous
  Country: GB (occurrence: GB)
  Receive Date: 20130201
  Receipt Date: 20130201
  Transmission Date: 20140127
  Serious: Yes (Other)
  Sender: FDA-Public Use
  Company Number: GB-ROCHE-1186431

PATIENT
  Sex: Male

DRUGS (1)
  1. BEVACIZUMAB [Suspect]
     Indication: OFF LABEL USE
     Dosage: 1.25 MG/0.05 ML
     Route: 050
     Dates: start: 20120220

REACTIONS (1)
  - Eye injury [Unknown]
